FAERS Safety Report 6506506-3 (Version None)
Quarter: 2009Q4

REPORT INFORMATION
  Report Type: 
  Country: None (occurrence: None)
  Receive Date: 20091221
  Receipt Date: 20091215
  Transmission Date: 20100525
  Serious: No
  Sender: FDA-Public Use
  Company Number: US-BAYER-200942800NA

PATIENT
  Age: 30 Year
  Sex: Male

DRUGS (1)
  1. AVELOX [Suspect]
     Indication: NASAL CONGESTION
     Dosage: UNIT DOSE: 400 MG
     Route: 048

REACTIONS (1)
  - HYPERSENSITIVITY [None]
